FAERS Safety Report 20743881 (Version 2)
Quarter: 2025Q4

REPORT INFORMATION
  Report Type: Spontaneous
  Country: EU (occurrence: EU)
  Receive Date: 20220425
  Receipt Date: 20251214
  Transmission Date: 20260118
  Serious: Yes (Death, Other)
  Sender: PFIZER
  Company Number: EU-002147023-NVSC2022PL078771

PATIENT
  Age: 7 Year
  Sex: Female

DRUGS (9)
  1. INOTUZUMAB OZOGAMICIN [Suspect]
     Active Substance: INOTUZUMAB OZOGAMICIN
     Dosage: UNK
     Route: 041
  2. RITUXIMAB [Suspect]
     Active Substance: RITUXIMAB
     Dosage: UNK
     Route: 042
  3. KYMRIAH [Suspect]
     Active Substance: TISAGENLECLEUCEL
     Dosage: UNK
     Route: 065
     Dates: start: 20210719
  4. VEPESID [Suspect]
     Active Substance: ETOPOSIDE
     Dosage: UNK
     Route: 065
  5. VEPESID [Suspect]
     Active Substance: ETOPOSIDE
     Dosage: UNK
     Route: 065
  6. CLOFARABINE [Suspect]
     Active Substance: CLOFARABINE
     Dosage: UNK
     Route: 065
  7. CLOFARABINE [Suspect]
     Active Substance: CLOFARABINE
     Dosage: UNK
     Route: 065
  8. CYCLOPHOSPHAMIDE [Suspect]
     Active Substance: CYCLOPHOSPHAMIDE
     Dosage: UNK
     Route: 065
  9. CYCLOPHOSPHAMIDE [Suspect]
     Active Substance: CYCLOPHOSPHAMIDE
     Dosage: UNK
     Route: 065

REACTIONS (11)
  - General physical health deterioration [Fatal]
  - Bone marrow failure [Unknown]
  - Pyrexia [Recovered/Resolved]
  - Eyelid oedema [Unknown]
  - Cytokine release syndrome [Unknown]
  - CSF test abnormal [Unknown]
  - Malignant neoplasm progression [Unknown]
  - Pleocytosis [Unknown]
  - Inflammation [Unknown]
  - Splenomegaly [Unknown]
  - Off label use [Unknown]
